FAERS Safety Report 13724409 (Version 1)
Quarter: 2017Q3

REPORT INFORMATION
  Report Type: Spontaneous
  Country: US (occurrence: US)
  Receive Date: 20170706
  Receipt Date: 20170706
  Transmission Date: 20171127
  Serious: No
  Sender: FDA-Public Use
  Company Number: US-JNJFOC-20170511596

PATIENT
  Age: 54 Year
  Sex: Male
  Weight: 108.86 kg

DRUGS (1)
  1. REMICADE [Suspect]
     Active Substance: INFLIXIMAB
     Indication: RHEUMATOID ARTHRITIS
     Route: 042
     Dates: start: 20170414

REACTIONS (2)
  - Nasopharyngitis [Unknown]
  - Malaise [Unknown]

NARRATIVE: CASE EVENT DATE: 201704
